FAERS Safety Report 23934280 (Version 1)
Quarter: 2024Q2

REPORT INFORMATION
  Report Type: Spontaneous
  Country: RU (occurrence: RU)
  Receive Date: 20240603
  Receipt Date: 20240603
  Transmission Date: 20240716
  Serious: Yes (Other)
  Sender: FDA-Public Use
  Company Number: RU-AMERICAN REGENT INC-2024002045

PATIENT
  Age: 37 Year
  Sex: Female

DRUGS (2)
  1. FERINJECT [Suspect]
     Active Substance: FERRIC CARBOXYMALTOSE
     Indication: Iron deficiency anaemia
     Dosage: FIRST DOSE (1000 MILLIGRAM)
     Dates: start: 20240502, end: 20240502
  2. FERINJECT [Suspect]
     Active Substance: FERRIC CARBOXYMALTOSE
     Dosage: 1000 MILLIGRAM, SECOND DOSE WAS PLANNED TO BE ADMINISTERED WITH 1000 MG
     Dates: start: 20240505, end: 20240505

REACTIONS (5)
  - Seizure [Recovered/Resolved]
  - Chest pain [Recovered/Resolved]
  - Overdose [Recovered/Resolved]
  - Maternal exposure during pregnancy [Unknown]
  - Inappropriate schedule of product administration [Unknown]

NARRATIVE: CASE EVENT DATE: 20240502
